FAERS Safety Report 5357075-5 (Version None)
Quarter: 2007Q2

REPORT INFORMATION
  Report Type: 
  Country: None (occurrence: None)
  Receive Date: 20070614
  Receipt Date: 20070604
  Transmission Date: 20071010
  Serious: Yes (Death)
  Sender: FDA-Public Use
  Company Number: FR-AVENTIS-200711470FR

PATIENT
  Age: 75 Year
  Sex: Male
  Weight: 105 kg

DRUGS (6)
  1. TAXOTERE [Suspect]
     Route: 042
     Dates: start: 20070110, end: 20070110
  2. ZOLADEX [Suspect]
     Route: 058
     Dates: start: 20061201
  3. VERAPAMIL [Concomitant]
  4. COZAAR [Concomitant]
  5. SEREVENT [Concomitant]
  6. PULMICORT [Concomitant]

REACTIONS (1)
  - SUDDEN DEATH [None]
